FAERS Safety Report 24622666 (Version 2)
Quarter: 2024Q4

REPORT INFORMATION
  Report Type: Spontaneous
  Country: KR (occurrence: KR)
  Receive Date: 20241115
  Receipt Date: 20241128
  Transmission Date: 20250115
  Serious: Yes (Life-Threatening, Other)
  Sender: BECTON DICKINSON
  Company Number: KR-BECTON DICKINSON-KR-BD-24-000643

PATIENT
  Age: 55 Year
  Sex: Male

DRUGS (1)
  1. CHLORHEXIDINE GLUCONATE\ISOPROPYL ALCOHOL [Suspect]
     Active Substance: CHLORHEXIDINE GLUCONATE\ISOPROPYL ALCOHOL
     Indication: Product used for unknown indication
     Dosage: UNK
     Route: 065

REACTIONS (2)
  - Pseudomonal sepsis [Recovered/Resolved]
  - Pseudomonal bacteraemia [Recovered/Resolved]
